FAERS Safety Report 5265032-2 (Version None)
Quarter: 2007Q1

REPORT INFORMATION
  Report Type: 
  Country: None (occurrence: None)
  Receive Date: 20061121
  Receipt Date: 20060831
  Transmission Date: 20070707
  Serious: No
  Sender: FDA-Public Use
  Company Number: TPA2005A01528

PATIENT
  Age: 71 Year
  Sex: Male
  Weight: 87.0906 kg

DRUGS (12)
  1. ROZEREM [Suspect]
     Indication: INSOMNIA
     Dosage: 8 MG, HS, PER ORAL
     Route: 048
     Dates: start: 20060824
  2. SERZONE [Suspect]
     Indication: DEPRESSION
     Dosage: 250 MG, 1 IN 1 D, PER ORAL
     Route: 048
     Dates: start: 19950101
  3. NEXIUM [Concomitant]
  4. CELEBREX [Concomitant]
  5. FLOMAX [Concomitant]
  6. AVODART [Concomitant]
  7. AMBIEN [Concomitant]
  8. ULTRAM [Concomitant]
  9. OSTEO BI-FLEX (GLUCOSAMINE HYDROCHLORIDE, CHONDROITIN SULFATE) [Concomitant]
  10. TIZANIDINE HCL [Concomitant]
  11. SEROQUEL [Concomitant]
  12. PROZAC [Concomitant]

REACTIONS (3)
  - DRUG INEFFECTIVE [None]
  - INSOMNIA [None]
  - MIDDLE INSOMNIA [None]
